FAERS Safety Report 17599820 (Version 1)
Quarter: 2020Q1

REPORT INFORMATION
  Report Type: Spontaneous
  Country: CN (occurrence: CN)
  Receive Date: 20200330
  Receipt Date: 20200330
  Transmission Date: 20200409
  Serious: Yes (Other)
  Sender: FDA-Public Use
  Company Number: CN-SA-2019SA281372

PATIENT
  Sex: Male

DRUGS (5)
  1. APATINIB [Suspect]
     Active Substance: APATINIB
     Indication: HEPATIC CANCER
     Dosage: 500-850 MG QD
     Route: 048
  2. LIPIODOL [Suspect]
     Active Substance: ETHIODIZED OIL
     Indication: HEPATIC CANCER
     Route: 042
  3. DOXORUBICIN [Suspect]
     Active Substance: DOXORUBICIN
     Indication: HEPATIC CANCER
     Dosage: 60 MG
  4. OXALIPLATIN. [Suspect]
     Active Substance: OXALIPLATIN
     Dosage: 100 MG
     Route: 048
  5. FLUOROURACIL. [Suspect]
     Active Substance: FLUOROURACIL
     Indication: HEPATIC CANCER
     Dosage: 500 MG

REACTIONS (4)
  - Bone marrow failure [Recovering/Resolving]
  - Anaemia [Recovering/Resolving]
  - Thrombocytopenia [Recovering/Resolving]
  - Leukopenia [Recovering/Resolving]
